FAERS Safety Report 12767603 (Version 2)
Quarter: 2016Q3

REPORT INFORMATION
  Report Type: Spontaneous
  Country: US (occurrence: US)
  Receive Date: 20160921
  Receipt Date: 20160927
  Transmission Date: 20161109
  Serious: No
  Sender: FDA-Public Use
  Company Number: US-PFIZER INC-2016428017

PATIENT
  Sex: Female

DRUGS (7)
  1. ZINC OXIDE. [Suspect]
     Active Substance: ZINC OXIDE
  2. IMITREX [Suspect]
     Active Substance: SUMATRIPTAN SUCCINATE
     Dosage: UNK
  3. ONDANSETRON HCL [Suspect]
     Active Substance: ONDANSETRON HYDROCHLORIDE
     Dosage: UNK
  4. ZOFRAN [Suspect]
     Active Substance: ONDANSETRON HYDROCHLORIDE
     Dosage: UNK
  5. IODINATED CONTRAST [Suspect]
     Active Substance: IODINE
     Dosage: UNK
  6. AZITHROMYCIN ANHYDROUS. [Suspect]
     Active Substance: AZITHROMYCIN ANHYDROUS
     Dosage: UNK
  7. ALBUTEROL /00139501/ [Suspect]
     Active Substance: ALBUTEROL

REACTIONS (1)
  - Drug hypersensitivity [Not Recovered/Not Resolved]
